FAERS Safety Report 17609316 (Version 1)
Quarter: 2020Q2

REPORT INFORMATION
  Report Type: Spontaneous
  Country: FR (occurrence: FR)
  Receive Date: 20200401
  Receipt Date: 20200401
  Transmission Date: 20200713
  Serious: Yes (Life-Threatening, Other)
  Sender: FDA-Public Use
  Company Number: FR-MACLEODS PHARMACEUTICALS US LTD-MAC2020025984

PATIENT

DRUGS (6)
  1. BEVACIZUMAB. [Suspect]
     Active Substance: BEVACIZUMAB
     Indication: MEDULLOBLASTOMA RECURRENT
     Dosage: 10 MILLIGRAM/KILOGRAM, QD, 10 MG/KG D1-D14-D21, 5 CYCLE
     Route: 042
  2. CYCLOPHOSPHAMIDE. [Suspect]
     Active Substance: CYCLOPHOSPHAMIDE
     Indication: MEDULLOBLASTOMA RECURRENT
     Dosage: 100 MILLIGRAM/D D22-42, 5 CYCLE
     Route: 065
  3. CELECOXIB. [Suspect]
     Active Substance: CELECOXIB
     Indication: MEDULLOBLASTOMA RECURRENT
     Dosage: 300 MILLIGRAM, BID MEMMAT 5 CYCLE
     Route: 065
  4. ETOPOSIDE. [Suspect]
     Active Substance: ETOPOSIDE
     Indication: MEDULLOBLASTOMA RECURRENT
     Dosage: 100  MG/D D1-21 5 MEMM  AT CYCLE
     Route: 065
  5. THALIDOMIDE [Suspect]
     Active Substance: THALIDOMIDE
     Indication: MEDULLOBLASTOMA RECURRENT
     Dosage: 100 MILLIGRAM, QD/DAY MEMMAT 5 CYCLE
     Route: 065
  6. FENOFIBRATE. [Suspect]
     Active Substance: FENOFIBRATE
     Indication: MEDULLOBLASTOMA RECURRENT
     Dosage: 160 MILLIGRAM, QD/DAY MEMMAT 5 CYCLE
     Route: 065

REACTIONS (6)
  - Lymphopenia [Unknown]
  - Renal impairment [Unknown]
  - Haematotoxicity [Unknown]
  - Fatigue [Unknown]
  - Pain in extremity [Unknown]
  - Neutropenia [Unknown]
